FAERS Safety Report 20048902 (Version 12)
Quarter: 2022Q3

REPORT INFORMATION
  Report Type: Report from Study
  Country: CN (occurrence: None)
  Receive Date: 20211109
  Receipt Date: 20220803
  Transmission Date: 20221027
  Serious: Yes (Hospitalization)
  Sender: FDA-Public Use
  Company Number: CN-ROCHE-2706685

PATIENT
  Age: 69 Year
  Sex: Male
  Weight: 57 kg

DRUGS (94)
  1. ATEZOLIZUMAB [Suspect]
     Active Substance: ATEZOLIZUMAB
     Indication: Non-small cell lung cancer stage IV
     Dosage: DAY 1 OF EACH 21-DAY CYCLE UNTIL UNACCEPTABLE TOXICITY OR LOSS OF CLINICAL BENEFIT.?ON 14/OCT/2020,
     Route: 041
     Dates: start: 20201014
  2. CARBOPLATIN [Suspect]
     Active Substance: CARBOPLATIN
     Indication: Non-small cell lung cancer stage IV
     Dosage: ADMINISTERED BY IV INFUSION TO ACHIEVE AN INITIAL TARGET AUC OF 6 MG/ML/MIN.?ON 14/OCT/2020, HE RECE
     Route: 042
     Dates: start: 20201014
  3. PEMETREXED [Suspect]
     Active Substance: PEMETREXED
     Indication: Non-small cell lung cancer stage IV
     Dosage: ON 14/OCT/2020, HE RECEIVED MOST RECENT DOSE OF PEMETREXED (840 MG) PRIOR TO ONSET OF FIRST EPISODE
     Route: 042
     Dates: start: 20201014
  4. BEVACIZUMAB [Suspect]
     Active Substance: BEVACIZUMAB
     Indication: Non-small cell lung cancer stage IV
     Dosage: DAY 1 OF EACH 21-DAY CYCLE.?ON 14/OCT/2020, HE RECEIVED MOST RECENT DOSE OF BEVACIZUMAB (975 MG) PRI
     Route: 042
     Dates: start: 20201014, end: 20211101
  5. FOLIC ACID [Concomitant]
     Active Substance: FOLIC ACID
     Indication: Premedication
     Dates: start: 20201007
  6. DEXAMETHASONE [Concomitant]
     Active Substance: DEXAMETHASONE
     Indication: Premedication
     Route: 048
     Dates: start: 20201012, end: 20201015
  7. DEXAMETHASONE [Concomitant]
     Active Substance: DEXAMETHASONE
     Route: 048
     Dates: start: 20201111, end: 20201113
  8. DEXAMETHASONE [Concomitant]
     Active Substance: DEXAMETHASONE
     Route: 048
     Dates: start: 20210310
  9. DEXAMETHASONE [Concomitant]
     Active Substance: DEXAMETHASONE
     Route: 048
     Dates: start: 20210331, end: 20210402
  10. DEXAMETHASONE [Concomitant]
     Active Substance: DEXAMETHASONE
     Dates: start: 20210629, end: 20210629
  11. GLUTATHIONE [Concomitant]
     Active Substance: GLUTATHIONE
     Dates: start: 20201014, end: 20201014
  12. GLUTATHIONE [Concomitant]
     Active Substance: GLUTATHIONE
     Dates: start: 20201112, end: 20201112
  13. GLUTATHIONE [Concomitant]
     Active Substance: GLUTATHIONE
     Dates: start: 20210401, end: 20210401
  14. GRANISETRON HYDROCHLORIDE [Concomitant]
     Active Substance: GRANISETRON HYDROCHLORIDE
     Dates: start: 20201014, end: 20201014
  15. GRANISETRON HYDROCHLORIDE [Concomitant]
     Active Substance: GRANISETRON HYDROCHLORIDE
     Dates: start: 20201112, end: 20201112
  16. GRANISETRON HYDROCHLORIDE [Concomitant]
     Active Substance: GRANISETRON HYDROCHLORIDE
     Dates: start: 20210401, end: 20210401
  17. APREPITANT [Concomitant]
     Active Substance: APREPITANT
     Dates: start: 20201014, end: 20201014
  18. APREPITANT [Concomitant]
     Active Substance: APREPITANT
     Dates: start: 20201112, end: 20201114
  19. MUCOPOLYSACCHARIDE POLYSULFATE [Concomitant]
     Dates: start: 20201014, end: 20201014
  20. MUCOPOLYSACCHARIDE POLYSULFATE [Concomitant]
     Dates: start: 20201111, end: 20201117
  21. MUCOPOLYSACCHARIDE POLYSULFATE [Concomitant]
     Dates: start: 20210401
  22. CALCIUM GLUCONATE [Concomitant]
     Active Substance: CALCIUM GLUCONATE
     Indication: Hypersensitivity
     Dates: start: 20201031, end: 20201031
  23. CALCIUM GLUCONATE [Concomitant]
     Active Substance: CALCIUM GLUCONATE
     Dates: start: 20210602, end: 20210603
  24. CALCIUM GLUCONATE [Concomitant]
     Active Substance: CALCIUM GLUCONATE
     Dates: start: 20210618, end: 20210618
  25. CALCIUM GLUCONATE [Concomitant]
     Active Substance: CALCIUM GLUCONATE
     Dates: start: 20210702, end: 20210702
  26. CALCIUM GLUCONATE [Concomitant]
     Active Substance: CALCIUM GLUCONATE
     Dates: start: 20210705, end: 20210705
  27. CALCIUM GLUCONATE [Concomitant]
     Active Substance: CALCIUM GLUCONATE
     Dates: start: 20210708, end: 20210708
  28. CALCIUM GLUCONATE [Concomitant]
     Active Substance: CALCIUM GLUCONATE
     Dates: start: 20210817, end: 20210817
  29. LACTULOSE [Concomitant]
     Active Substance: LACTULOSE
     Indication: Constipation
     Route: 048
     Dates: start: 20201103, end: 20201105
  30. LACTULOSE [Concomitant]
     Active Substance: LACTULOSE
     Route: 048
     Dates: start: 20201113
  31. LACTULOSE [Concomitant]
     Active Substance: LACTULOSE
     Route: 048
     Dates: start: 20210601, end: 20210603
  32. LACTULOSE [Concomitant]
     Active Substance: LACTULOSE
     Route: 048
     Dates: start: 20210619, end: 20210620
  33. LACTULOSE [Concomitant]
     Active Substance: LACTULOSE
     Route: 048
     Dates: start: 20210629, end: 20210709
  34. METOCLOPRAMIDE [Concomitant]
     Active Substance: METOCLOPRAMIDE
     Indication: Prophylaxis of nausea and vomiting
     Dates: start: 20201112, end: 20201119
  35. METOCLOPRAMIDE [Concomitant]
     Active Substance: METOCLOPRAMIDE
     Indication: Prophylaxis of nausea and vomiting
  36. GLYCERIN [Concomitant]
     Active Substance: GLYCERIN
     Indication: Constipation
     Dosage: ENEMA
     Dates: start: 20201113
  37. GLYCERIN [Concomitant]
     Active Substance: GLYCERIN
     Dates: start: 20210629, end: 20210629
  38. GLYCERIN [Concomitant]
     Active Substance: GLYCERIN
     Dates: start: 20210702, end: 20210702
  39. COMPOUND PLATYCODON [Concomitant]
     Dates: start: 20201012, end: 20201113
  40. OMEPRAZOLE [Concomitant]
     Active Substance: OMEPRAZOLE
     Dosage: YES
     Dates: start: 20210603
  41. OMEPRAZOLE [Concomitant]
     Active Substance: OMEPRAZOLE
     Dates: start: 20210619, end: 20210619
  42. ZOPICLONE [Concomitant]
     Active Substance: ZOPICLONE
     Dates: start: 20210531, end: 20210604
  43. ZOPICLONE [Concomitant]
     Active Substance: ZOPICLONE
     Dates: start: 20210628, end: 20210709
  44. VITAMIN K1 [Concomitant]
     Active Substance: PHYTONADIONE
     Dates: start: 20210603, end: 20210603
  45. VITAMIN B6 [Concomitant]
     Active Substance: PYRIDOXINE HYDROCHLORIDE
     Dates: start: 20210531, end: 20210531
  46. VITAMIN B6 [Concomitant]
     Active Substance: PYRIDOXINE HYDROCHLORIDE
     Dates: start: 20210629, end: 20210629
  47. VITAMIN C [Concomitant]
     Active Substance: ASCORBIC ACID
     Dates: start: 20210531, end: 20210531
  48. DEXTROSE [Concomitant]
     Active Substance: DEXTROSE
     Dates: start: 20210531, end: 20210531
  49. ZOLEDRONIC ACID [Concomitant]
     Active Substance: ZOLEDRONIC ACID
     Dates: start: 20210501, end: 20210501
  50. INDOMETHACIN [Concomitant]
     Active Substance: INDOMETHACIN
     Dates: start: 20210601, end: 20210601
  51. INDOMETHACIN [Concomitant]
     Active Substance: INDOMETHACIN
     Dates: start: 20210603, end: 20210603
  52. DOMPERIDONE [Concomitant]
     Active Substance: DOMPERIDONE
     Dates: start: 20210603, end: 20210603
  53. PANTOPRAZOLE SODIUM [Concomitant]
     Active Substance: PANTOPRAZOLE SODIUM
     Dates: start: 20210603, end: 20210603
  54. PANTOPRAZOLE SODIUM [Concomitant]
     Active Substance: PANTOPRAZOLE SODIUM
     Dates: start: 20210619, end: 20210619
  55. POTASSIUM CITRATE [Concomitant]
     Active Substance: POTASSIUM CITRATE
     Dates: start: 20210603, end: 20210603
  56. POTASSIUM CITRATE [Concomitant]
     Active Substance: POTASSIUM CITRATE
     Dates: start: 20210629, end: 20210709
  57. FUROSEMIDE [Concomitant]
     Active Substance: FUROSEMIDE
     Dates: start: 20210602, end: 20210603
  58. HEPARIN SODIUM [Concomitant]
     Active Substance: HEPARIN SODIUM
     Dates: start: 20210531, end: 20210531
  59. CEFOTAXIME SODIUM;SULBACTAM [Concomitant]
     Dates: start: 20210603, end: 20210603
  60. HUMAN RED BLOOD CELL [Concomitant]
     Active Substance: HUMAN RED BLOOD CELL
     Dates: start: 20210507, end: 20210508
  61. HUMAN RED BLOOD CELL [Concomitant]
     Active Substance: HUMAN RED BLOOD CELL
     Dates: start: 20210602, end: 20210603
  62. HUMAN RED BLOOD CELL [Concomitant]
     Active Substance: HUMAN RED BLOOD CELL
     Dates: start: 20210620, end: 20210620
  63. HUMAN RED BLOOD CELL [Concomitant]
     Active Substance: HUMAN RED BLOOD CELL
     Dates: start: 20210629, end: 20210629
  64. HUMAN RED BLOOD CELL [Concomitant]
     Active Substance: HUMAN RED BLOOD CELL
     Dates: start: 20210702, end: 20210702
  65. HUMAN RED BLOOD CELL [Concomitant]
     Active Substance: HUMAN RED BLOOD CELL
     Dates: start: 20210705, end: 20210705
  66. HUMAN RED BLOOD CELL [Concomitant]
     Active Substance: HUMAN RED BLOOD CELL
     Dates: start: 20210707, end: 20210707
  67. HUMAN RED BLOOD CELL [Concomitant]
     Active Substance: HUMAN RED BLOOD CELL
     Dates: start: 20210708, end: 20210708
  68. MONOETHANOLAMINE [Concomitant]
     Active Substance: MONOETHANOLAMINE
     Dates: start: 20210628, end: 20210709
  69. LEUCOGEN (CHINA) [Concomitant]
  70. COMPOUND CHLORHEXIDINE GARGLE [Concomitant]
     Dates: start: 20210630, end: 20210630
  71. POTASSIUM CHLORIDE [Concomitant]
     Active Substance: POTASSIUM CHLORIDE
     Dates: start: 20210619, end: 20210620
  72. POTASSIUM CHLORIDE [Concomitant]
     Active Substance: POTASSIUM CHLORIDE
     Dates: start: 20210619, end: 20210619
  73. POTASSIUM CHLORIDE [Concomitant]
     Active Substance: POTASSIUM CHLORIDE
     Dates: start: 20210620, end: 20210620
  74. PHENETHYLAMINE [Concomitant]
     Active Substance: PHENETHYLAMINE
  75. PIPERACILLIN SODIUM\TAZOBACTAM SODIUM [Concomitant]
     Active Substance: PIPERACILLIN SODIUM\TAZOBACTAM SODIUM
  76. BUCINNAZINE HYDROCHLORIDE [Concomitant]
  77. LORAZEPAM [Concomitant]
     Active Substance: LORAZEPAM
  78. PAROXETINE HYDROCHLORIDE [Concomitant]
     Active Substance: PAROXETINE HYDROCHLORIDE
     Indication: Depression
     Dates: start: 20210619, end: 20210620
  79. PAROXETINE HYDROCHLORIDE [Concomitant]
     Active Substance: PAROXETINE HYDROCHLORIDE
     Dates: start: 20210628, end: 20210701
  80. ESOMEPRAZOLE MAGNESIUM [Concomitant]
     Active Substance: ESOMEPRAZOLE MAGNESIUM
  81. OMEPRAZOLE SODIUM [Concomitant]
     Active Substance: OMEPRAZOLE SODIUM
     Dates: start: 20210531, end: 20210603
  82. SUCRALFATE [Concomitant]
     Active Substance: SUCRALFATE
  83. CARBAZOCHROME SODIUM SULFONATE [Concomitant]
     Active Substance: CARBAZOCHROME SODIUM SULFONATE
     Indication: Upper gastrointestinal haemorrhage
     Dates: start: 20210507, end: 20210510
  84. DOMPERIDONE [Concomitant]
     Active Substance: DOMPERIDONE
     Dates: start: 20210603, end: 20210603
  85. TRAMADOL HYDROCHLORIDE [Concomitant]
     Active Substance: TRAMADOL HYDROCHLORIDE
     Dates: start: 20210628, end: 20210629
  86. TRAMADOL HYDROCHLORIDE [Concomitant]
     Active Substance: TRAMADOL HYDROCHLORIDE
     Dates: start: 20210630, end: 20210630
  87. TRAMADOL HYDROCHLORIDE [Concomitant]
     Active Substance: TRAMADOL HYDROCHLORIDE
     Dates: start: 20210701, end: 20210709
  88. MOSAPRIDE CITRATE [Concomitant]
     Active Substance: MOSAPRIDE CITRATE
     Dates: start: 20210619, end: 20210620
  89. ZOPICLONE [Concomitant]
     Active Substance: ZOPICLONE
     Dates: start: 20210618, end: 20210620
  90. OMEPRAZOLE MAGNESIUM [Concomitant]
     Active Substance: OMEPRAZOLE MAGNESIUM
     Dates: start: 20210619, end: 20210619
  91. GRANULOCYTE COLONY-STIMULATING FACTOR NOS [Concomitant]
     Active Substance: GRANULOCYTE COLONY-STIMULATING FACTOR NOS
     Indication: Neutrophil count
     Dates: start: 20210813, end: 20210816
  92. HUMAN RED BLOOD CELL [Concomitant]
     Active Substance: HUMAN RED BLOOD CELL
     Dates: start: 20210830, end: 20210830
  93. HUMAN RED BLOOD CELL [Concomitant]
     Active Substance: HUMAN RED BLOOD CELL
     Dates: start: 20210919, end: 20210919
  94. HUMAN RED BLOOD CELL [Concomitant]
     Active Substance: HUMAN RED BLOOD CELL
     Dates: start: 20210920, end: 20210920

REACTIONS (1)
  - Platelet count decreased [Not Recovered/Not Resolved]

NARRATIVE: CASE EVENT DATE: 20201027
